FAERS Safety Report 20196477 (Version 1)
Quarter: 2021Q4

REPORT INFORMATION
  Report Type: Report from Study
  Country: US (occurrence: US)
  Receive Date: 20211216
  Receipt Date: 20211216
  Transmission Date: 20220303
  Serious: Yes (Hospitalization, Other)
  Sender: FDA-Public Use
  Company Number: US-BRISTOL-MYERS SQUIBB COMPANY-BMS-2021-133857

PATIENT
  Age: 64 Year
  Sex: Male
  Weight: 85.1 kg

DRUGS (4)
  1. NIVOLUMAB [Suspect]
     Active Substance: NIVOLUMAB
     Indication: Glioblastoma
     Dosage: UNK
     Route: 065
     Dates: start: 20210629
  2. NIVOLUMAB [Suspect]
     Active Substance: NIVOLUMAB
     Dosage: 264 MILLIGRAM
     Route: 065
     Dates: start: 20211028, end: 20211123
  3. IPILIMUMAB [Suspect]
     Active Substance: IPILIMUMAB
     Indication: Glioblastoma
     Dosage: UNK
     Route: 065
     Dates: start: 20210629
  4. IPILIMUMAB [Suspect]
     Active Substance: IPILIMUMAB
     Dosage: 264 MILLIGRAM
     Route: 065
     Dates: start: 20211028, end: 20211123

REACTIONS (1)
  - Immune-mediated encephalopathy [Recovered/Resolved]

NARRATIVE: CASE EVENT DATE: 20211105
